FAERS Safety Report 16442202 (Version 2)
Quarter: 2020Q2

REPORT INFORMATION
  Report Type: Report from Study
  Country: None (occurrence: US)
  Receive Date: 20190617
  Receipt Date: 20200604
  Transmission Date: 20200713
  Serious: Yes (Hospitalization, Other)
  Sender: FDA-Public Use
  Company Number: US-US WORLDMEDS, LLC-USW201902-000261

PATIENT
  Age: 47 Year
  Sex: Male
  Weight: 133.81 kg

DRUGS (6)
  1. SINEMET [Concomitant]
     Active Substance: CARBIDOPA\LEVODOPA
  2. APOKYN [Suspect]
     Active Substance: APOMORPHINE HYDROCHLORIDE
     Route: 058
     Dates: start: 20180207
  3. SINEMET [Concomitant]
     Active Substance: CARBIDOPA\LEVODOPA
  4. APOKYN [Suspect]
     Active Substance: APOMORPHINE HYDROCHLORIDE
     Indication: PARKINSON^S DISEASE
     Route: 058
     Dates: start: 20180307, end: 20190131
  5. LEXAPRO [Concomitant]
     Active Substance: ESCITALOPRAM OXALATE
  6. PRAMIPEXOLE. [Concomitant]
     Active Substance: PRAMIPEXOLE

REACTIONS (8)
  - Dehydration [Unknown]
  - Prescribed overdose [Unknown]
  - Mental status changes [Unknown]
  - Confusional state [Unknown]
  - Agitation [Unknown]
  - Insomnia [Unknown]
  - Adverse event [Unknown]
  - Diarrhoea [Unknown]

NARRATIVE: CASE EVENT DATE: 20190131
